FAERS Safety Report 17349626 (Version 1)
Quarter: 2020Q1

REPORT INFORMATION
  Report Type: Spontaneous
  Country: US (occurrence: US)
  Receive Date: 20200129
  Receipt Date: 20200129
  Transmission Date: 20200409
  Serious: Yes (Hospitalization)
  Sender: FDA-Public Use
  Company Number: None

PATIENT
  Age: 55 Year
  Sex: Female
  Weight: 64.35 kg

DRUGS (10)
  1. FOLIC ACID 1MG [Concomitant]
     Active Substance: FOLIC ACID
  2. SYNTHROID .125MCG [Concomitant]
  3. POTASSIUM CIT 1080 MG (10MEQ) TABS - SUBSTITUTED FOR UROCIT-K 1080MG [Suspect]
     Active Substance: POTASSIUM CITRATE
     Indication: NEPHROLITHIASIS
     Dosage: ?          QUANTITY:1 TABLET(S);?
     Route: 048
     Dates: start: 20200120, end: 20200122
  4. VITAMIN D2 50,000IU [Concomitant]
  5. SYNTHROID .137MCG [Concomitant]
  6. MULTI-VITAMIN [Concomitant]
     Active Substance: .ALPHA.-TOCOPHEROL ACETATE, DL-\ASCORBIC ACID\CYANOCOBALAMIN\FLUORIDE ION\FOLIC ACID\NIACIN\PYRIDOXINE\RIBOFLAVIN\THIAMINE\VITAMIN A\VITAMIN D
  7. MONTELUKAST SODIUM TAB 10MG [Concomitant]
  8. LOSARTAN 100MG [Concomitant]
     Active Substance: LOSARTAN
  9. VITAMIN B-12 SUBLINGUAL [Concomitant]
  10. BIOTIN 10,000 MCG [Concomitant]

REACTIONS (3)
  - Abdominal discomfort [None]
  - Feeling abnormal [None]
  - Confusional state [None]

NARRATIVE: CASE EVENT DATE: 20200123
